FAERS Safety Report 10756048 (Version 1)
Quarter: 2015Q1

REPORT INFORMATION
  Report Type: Spontaneous
  Country: US (occurrence: US)
  Receive Date: 20150202
  Receipt Date: 20150202
  Transmission Date: 20150721
  Serious: Yes (Hospitalization, Other)
  Sender: FDA-Public Use
  Company Number: US-BAYER-2015-012198

PATIENT
  Age: 37 Year
  Sex: Male

DRUGS (7)
  1. ALCOHOL. [Concomitant]
     Active Substance: ALCOHOL
  2. CORICIDIN D [CHLORPHENAM MAL,PARACET,PHENYLPROPANOLAM HCL] [Suspect]
     Active Substance: ACETAMINOPHEN\CHLORPHENIRAMINE MALEATE\PHENYLEPHRINE HYDROCHLORIDE
     Indication: INFLUENZA
     Dosage: UNK
     Route: 048
     Dates: start: 19950204, end: 19950208
  3. TUSSIN CF [Suspect]
     Active Substance: DEXTROMETHORPHAN HYDROBROMIDE\GUAIFENESIN\PHENYLEPHRINE HYDROCHLORIDE
     Indication: PRODUCT USED FOR UNKNOWN INDICATION
     Dosage: UNK, QD
     Route: 048
     Dates: start: 199501, end: 199502
  4. ALKA-SELTZER ORIGINAL [Suspect]
     Active Substance: ANHYDROUS CITRIC ACID\ASPIRIN\SODIUM BICARBONATE
     Indication: PRODUCT USED FOR UNKNOWN INDICATION
     Dosage: UNK
     Route: 048
     Dates: start: 19950108, end: 19950204
  5. CORICIDIN D [CHLORPHENAM MAL,PARACET,PHENYLPROPANOLAM HCL] [Suspect]
     Active Substance: ACETAMINOPHEN\CHLORPHENIRAMINE MALEATE\PHENYLEPHRINE HYDROCHLORIDE
     Indication: NASOPHARYNGITIS
     Dosage: UNK, PRN
     Route: 048
     Dates: start: 19950108, end: 19950204
  6. NICOTINE. [Concomitant]
     Active Substance: NICOTINE
  7. ASPIRIN. [Concomitant]
     Active Substance: ASPIRIN
     Indication: HEADACHE

REACTIONS (10)
  - Amnesia [None]
  - Blindness [None]
  - Fatigue [None]
  - Sleep disorder [None]
  - Disability [None]
  - Fibromyalgia [Not Recovered/Not Resolved]
  - Headache [None]
  - Loss of libido [None]
  - Emotional distress [None]
  - Cerebellar infarction [Recovered/Resolved]

NARRATIVE: CASE EVENT DATE: 19950208
